FAERS Safety Report 8363325-3 (Version None)
Quarter: 2012Q2

REPORT INFORMATION
  Report Type: 
  Country: None (occurrence: None)
  Receive Date: 20120516
  Receipt Date: 20120507
  Transmission Date: 20120825
  Serious: Yes (Other)
  Sender: FDA-Public Use
  Company Number: US-BAYER-2012-040249

PATIENT
  Age: 88 Year
  Sex: Male
  Weight: 89.81 kg

DRUGS (18)
  1. FUROSEMIDE [Concomitant]
  2. NIFEDIPINE [Concomitant]
  3. ZOCOR [Concomitant]
     Indication: BLOOD CHOLESTEROL ABNORMAL
  4. SINGULAIR [Concomitant]
     Dates: start: 20080101
  5. NIFEDIPINE [Concomitant]
     Dates: start: 20060101
  6. PRILOSEC [Concomitant]
     Dates: start: 20080101
  7. XARELTO [Interacting]
     Indication: DEEP VEIN THROMBOSIS
     Dosage: 15 MG, QD
     Route: 048
     Dates: start: 20120217
  8. FUROSEMIDE [Concomitant]
  9. TERAZOSIN HCL [Concomitant]
  10. TERAZOSIN HCL [Concomitant]
     Dates: start: 20060101
  11. ZOCOR [Concomitant]
     Dates: start: 20080101
  12. FINASTERIDE [Concomitant]
     Dates: start: 20080101
  13. SYMBICORT [Concomitant]
  14. PLAVIX [Interacting]
     Indication: CORONARY ARTERY DISEASE
     Dates: start: 20110101
  15. SINGULAIR [Concomitant]
  16. ASPIRIN [Suspect]
     Indication: CORONARY ARTERY DISEASE
  17. SYMBICORT [Concomitant]
     Dates: start: 20080101
  18. LISINOPRIL [Concomitant]
     Dates: start: 20060101

REACTIONS (1)
  - EYE HAEMORRHAGE [None]
